FAERS Safety Report 20751030 (Version 9)
Quarter: 2023Q1

REPORT INFORMATION
  Report Type: Spontaneous
  Country: US (occurrence: US)
  Receive Date: 20220426
  Receipt Date: 20230215
  Transmission Date: 20230418
  Serious: Yes (Hospitalization, Other)
  Sender: FDA-Public Use
  Company Number: US-BIOVITRUM-2022US04995

PATIENT
  Age: 52 Year
  Sex: Female

DRUGS (3)
  1. KINERET [Suspect]
     Active Substance: ANAKINRA
     Indication: Rheumatoid arthritis
     Dates: start: 20190411
  2. KINERET [Suspect]
     Active Substance: ANAKINRA
     Dates: start: 20190416
  3. KINERET [Suspect]
     Active Substance: ANAKINRA
     Dates: start: 201904

REACTIONS (22)
  - Head injury [Recovered/Resolved]
  - Injection site infection [Unknown]
  - Rheumatoid arthritis [Unknown]
  - Dizziness [Recovered/Resolved]
  - Amnesia [Recovered/Resolved]
  - Confusional state [Recovered/Resolved]
  - Contusion [Recovered/Resolved]
  - Swelling face [Recovered/Resolved]
  - Concussion [Recovered/Resolved]
  - Vomiting [Recovered/Resolved]
  - Sciatica [Unknown]
  - Intervertebral disc protrusion [Unknown]
  - Pain in extremity [Not Recovered/Not Resolved]
  - Constipation [Recovered/Resolved]
  - Pain [Unknown]
  - Neuralgia [Unknown]
  - Hot flush [Unknown]
  - Insomnia [Unknown]
  - Injury associated with device [Unknown]
  - Needle issue [Unknown]
  - Product dose omission issue [Unknown]
  - Insurance issue [Unknown]

NARRATIVE: CASE EVENT DATE: 20220401
